FAERS Safety Report 5703506-8 (Version None)
Quarter: 2008Q2

REPORT INFORMATION
  Report Type: 
  Country: None (occurrence: None)
  Receive Date: 20080411
  Receipt Date: 20080403
  Transmission Date: 20081010
  Serious: Yes (Other)
  Sender: FDA-Public Use
  Company Number: US-PFIZER INC-2008029676

PATIENT
  Sex: Female

DRUGS (2)
  1. XANAX [Suspect]
  2. SYNTHROID [Concomitant]
     Indication: THYROID DISORDER

REACTIONS (4)
  - DIZZINESS [None]
  - HYPOAESTHESIA FACIAL [None]
  - MEDICATION ERROR [None]
  - SPEECH DISORDER [None]
